FAERS Safety Report 24447247 (Version 6)
Quarter: 2025Q1

REPORT INFORMATION
  Report Type: Spontaneous
  Country: US (occurrence: US)
  Receive Date: 20241016
  Receipt Date: 20250114
  Transmission Date: 20250408
  Serious: Yes (Hospitalization)
  Sender: SANOFI AVENTIS
  Company Number: US-SA-2024SA063892

PATIENT
  Sex: Female
  Weight: 63.64 kg

DRUGS (19)
  1. DUPIXENT [Suspect]
     Active Substance: DUPILUMAB
     Indication: Asthma
     Dosage: 300 MG, QOW
     Route: 058
  2. PLAVIX [Concomitant]
     Active Substance: CLOPIDOGREL BISULFATE
  3. TORSEMIDE [Concomitant]
     Active Substance: TORSEMIDE
  4. RUCONEST [Concomitant]
     Active Substance: CONESTAT ALFA
  5. EPINEPHRINE [Concomitant]
     Active Substance: EPINEPHRINE
  6. HUMIRA [Concomitant]
     Active Substance: ADALIMUMAB
  7. SODIUM CHLORIDE [Concomitant]
     Active Substance: SODIUM CHLORIDE
  8. XYZAL [Concomitant]
     Active Substance: LEVOCETIRIZINE DIHYDROCHLORIDE
  9. SYNTHROID [Concomitant]
     Active Substance: LEVOTHYROXINE SODIUM
  10. ADDERALL [Concomitant]
     Active Substance: AMPHETAMINE ASPARTATE\AMPHETAMINE SULFATE\DEXTROAMPHETAMINE SACCHARATE\DEXTROAMPHETAMINE SULFATE
  11. ONDANSETRON HYDROCHLORIDE [Concomitant]
     Active Substance: ONDANSETRON HYDROCHLORIDE
  12. METHOCARBAMOL [Concomitant]
     Active Substance: METHOCARBAMOL
  13. OXYCODONE HYDROCHLORIDE [Concomitant]
     Active Substance: OXYCODONE HYDROCHLORIDE
  14. SAJAZIR [Concomitant]
     Active Substance: ICATIBANT ACETATE
  15. COLCHICINE [Concomitant]
     Active Substance: COLCHICINE
  16. ALBUTEROL SULFATE [Concomitant]
     Active Substance: ALBUTEROL SULFATE
  17. ORLADEYO [Concomitant]
     Active Substance: BEROTRALSTAT HYDROCHLORIDE
  18. OZEMPIC [Concomitant]
     Active Substance: SEMAGLUTIDE
  19. WATER FOR INJECTION [Concomitant]
     Active Substance: WATER

REACTIONS (7)
  - Hereditary angioedema [Unknown]
  - Lip swelling [Unknown]
  - COVID-19 [Unknown]
  - Stress [Unknown]
  - Pain in extremity [Unknown]
  - Arthralgia [Unknown]
  - Back pain [Unknown]
